FAERS Safety Report 14602559 (Version 3)
Quarter: 2018Q2

REPORT INFORMATION
  Report Type: Spontaneous
  Country: US (occurrence: US)
  Receive Date: 20180306
  Receipt Date: 20180514
  Transmission Date: 20180711
  Serious: Yes (Other)
  Sender: FDA-Public Use
  Company Number: US-PFIZER INC-2018093254

PATIENT
  Age: 44 Year
  Sex: Female

DRUGS (1)
  1. LYRICA [Suspect]
     Active Substance: PREGABALIN
     Indication: GUILLAIN-BARRE SYNDROME
     Dosage: 225 MG, 2X/DAY (225MG CAPSULES, ONE IN THE MORNING AND ONE AT NIGHT)
     Dates: start: 201504

REACTIONS (6)
  - Product use in unapproved indication [Unknown]
  - Burning sensation [Unknown]
  - Disease recurrence [Unknown]
  - Feeling hot [Unknown]
  - Guillain-Barre syndrome [Unknown]
  - Paraesthesia [Unknown]

NARRATIVE: CASE EVENT DATE: 201504
